FAERS Safety Report 5268389-1 (Version None)
Quarter: 2007Q1

REPORT INFORMATION
  Report Type: 
  Country: None (occurrence: None)
  Receive Date: 20070319
  Receipt Date: 20070306
  Transmission Date: 20070707
  Serious: Yes (Other)
  Sender: FDA-Public Use
  Company Number: PHRM2006FR02981

PATIENT
  Age: 40 Year
  Sex: Female
  Weight: 58 kg

DRUGS (4)
  1. TEGRETOL [Suspect]
     Indication: MYOCLONIC EPILEPSY
     Dosage: 900 MG DAILY
     Route: 048
  2. TEGRETOL [Suspect]
     Dosage: 1200 MG DAILY
     Route: 048
  3. DEPAKENE [Concomitant]
     Indication: EPILEPSY
     Dosage: 3250 MG DAILY
     Route: 048
  4. RIVOTRIL [Concomitant]
     Dosage: 7 MG DAILY
     Route: 048

REACTIONS (4)
  - BONE DENSITY DECREASED [None]
  - FRACTURE [None]
  - OSTEOPOROSIS [None]
  - VITAMIN D DECREASED [None]
